FAERS Safety Report 26108616 (Version 1)
Quarter: 2025Q4

REPORT INFORMATION
  Report Type: Spontaneous
  Country: US (occurrence: None)
  Receive Date: 20251128
  Receipt Date: 20251128
  Transmission Date: 20260118
  Serious: Yes (Other)
  Sender: FDA-CTU
  Company Number: None

PATIENT
  Age: 57 Year
  Sex: Male
  Weight: 94.05 kg

DRUGS (6)
  1. INGREZZA [Suspect]
     Active Substance: VALBENAZINE DITOSYLATE
     Indication: Tardive dyskinesia
     Dosage: OTHER QUANTITY : 1 TABLET(S);?
     Route: 048
     Dates: start: 20251003, end: 20251015
  2. HYDROXYCHLOROQUINE [Concomitant]
     Active Substance: HYDROXYCHLOROQUINE
  3. COGENTIN [Concomitant]
     Active Substance: BENZTROPINE MESYLATE
  4. xertec [Concomitant]
  5. VRAYLAR [Concomitant]
     Active Substance: CARIPRAZINE
  6. MODAFINIL [Concomitant]
     Active Substance: MODAFINIL

REACTIONS (3)
  - Libido decreased [None]
  - Suicidal ideation [None]
  - Feeling abnormal [None]

NARRATIVE: CASE EVENT DATE: 20251015
